FAERS Safety Report 7290295-1 (Version None)
Quarter: 2011Q1

REPORT INFORMATION
  Report Type: 
  Country: None (occurrence: None)
  Receive Date: 20110208
  Receipt Date: 20110208
  Transmission Date: 20110831
  Serious: Yes (Other)
  Sender: FDA-Public Use
  Company Number: None

PATIENT
  Sex: Male

DRUGS (1)
  1. SPRYCEL [Suspect]
     Indication: LEUKAEMIA
     Dosage: 50MG ONCE DAILY PO
     Route: 048
     Dates: start: 20110126, end: 20110202

REACTIONS (2)
  - RASH [None]
  - NAUSEA [None]
